FAERS Safety Report 5850207-1 (Version None)
Quarter: 2008Q3

REPORT INFORMATION
  Report Type: 
  Country: None (occurrence: None)
  Receive Date: 20080819
  Receipt Date: 20080805
  Transmission Date: 20090109
  Serious: Yes (Hospitalization)
  Sender: FDA-Public Use
  Company Number: US-ELI_LILLY_AND_COMPANY-US200808000875

PATIENT
  Age: 75 Year
  Sex: Female

DRUGS (1)
  1. FORTEO [Suspect]
     Dates: start: 20060101

REACTIONS (10)
  - ALCOHOL ABUSE [None]
  - CONFUSIONAL STATE [None]
  - DRUG ABUSE [None]
  - GAIT DISTURBANCE [None]
  - HOSPITALISATION [None]
  - HYPERTENSION [None]
  - JUDGEMENT IMPAIRED [None]
  - MYALGIA [None]
  - OSTEOPOROSIS [None]
  - RHEUMATOID ARTHRITIS [None]
